FAERS Safety Report 9032515 (Version 1)
Quarter: 2013Q1

REPORT INFORMATION
  Report Type: Spontaneous
  Country: GB (occurrence: None)
  Receive Date: 20130108
  Receipt Date: 20130108
  Transmission Date: 20140127
  Serious: Yes (Other)
  Sender: FDA-Public Use
  Company Number: DSA_61770_2013

PATIENT
  Age: 49 Year
  Sex: Female

DRUGS (1)
  1. METRONIDAZOLE (METRONIDAZOLE) [Suspect]
     Dates: start: 20121219

REACTIONS (1)
  - Swollen tongue [None]
